FAERS Safety Report 6114876-3 (Version None)
Quarter: 2009Q1

REPORT INFORMATION
  Report Type: 
  Country: None (occurrence: None)
  Receive Date: 20090313
  Receipt Date: 20090304
  Transmission Date: 20090719
  Serious: Yes (Hospitalization, Disabling, Other)
  Sender: FDA-Public Use
  Company Number: PHHY2009FR08177

PATIENT
  Sex: Female

DRUGS (6)
  1. FEMARA [Suspect]
     Indication: BREAST CANCER
     Dosage: 2.5 MG, QD
     Route: 048
     Dates: start: 20070612, end: 20081101
  2. CHONDROSULF [Concomitant]
     Dosage: 3 DF/DAY
  3. MEDIATENSYL [Concomitant]
     Dosage: 120 MG/DAY
  4. LEVOTHYROXINE SODIUM [Concomitant]
     Dosage: 50 UG, QD
  5. NEURONTIN [Concomitant]
     Dosage: 900 MG/DAY
  6. DAFALGAN [Concomitant]
     Indication: PAIN
     Dosage: PRN

REACTIONS (7)
  - ARTHRALGIA [None]
  - HOT FLUSH [None]
  - INSOMNIA [None]
  - OSTEOARTHRITIS [None]
  - TENDONITIS [None]
  - TENOSYNOVITIS STENOSANS [None]
  - WRIST SURGERY [None]
